FAERS Safety Report 9523967 (Version 1)
Quarter: 2013Q3

REPORT INFORMATION
  Report Type: Spontaneous
  Country: US (occurrence: None)
  Receive Date: 20130912
  Receipt Date: 20130912
  Transmission Date: 20140515
  Serious: Yes (Death)
  Sender: FDA-Public Use
  Company Number: None

PATIENT
  Age: 63 Year
  Sex: Female

DRUGS (16)
  1. ACETAMINOPHEN / HYDROCODONE [Suspect]
     Dosage: 1-2 TABS PRN
     Route: 048
  2. ALBUTEROL [Suspect]
     Dosage: INHALATION AEROSOL WITH ADAPTOR, 2 PUFFS
  3. AMIODARONE [Suspect]
     Dosage: 1 TABLET
     Route: 048
  4. BENAZEPRIL AND HYDROCHLOROTHIAZIDE [Suspect]
     Dosage: 1 TABLET
  5. CARDIZEM [Suspect]
     Route: 048
  6. CLONAZEPAM [Suspect]
     Dosage: ONE TABLET
     Route: 048
  7. MEGA [Suspect]
     Dosage: ONE TABLET
  8. METFORMIN [Suspect]
     Dosage: ONE TABLET
     Route: 048
  9. METOPROLOL SUCCINATE [Suspect]
     Dosage: TABLET, EXTENDED RELEASE
     Route: 048
  10. MIRTAZAPINE [Suspect]
     Dosage: ONE TABLET
     Route: 048
  11. POTASSIUM CHLORIDE [Suspect]
     Dosage: ONE TABLET, EXTENDED RELEASE
     Route: 048
  12. PRADAXA [Suspect]
     Dosage: ONE TABLET
     Route: 048
  13. SCHIFF MOVE FREE [Suspect]
     Dosage: ONE TABLET
     Route: 048
  14. SIMVASTATIN [Suspect]
     Dosage: ONE TABLET
     Route: 048
  15. SPIRIVA [Suspect]
     Dosage: ONE TABLET
     Route: 055
  16. TORSEMIDE [Suspect]
     Dosage: 1/2 TAB
     Route: 048

REACTIONS (5)
  - Respiratory failure [None]
  - Lung disorder [None]
  - Toxicity to various agents [None]
  - Pulmonary arterial pressure increased [None]
  - Pickwickian syndrome [None]
